FAERS Safety Report 10228907 (Version 2)
Quarter: 2014Q2

REPORT INFORMATION
  Report Type: Spontaneous
  Country: US (occurrence: US)
  Receive Date: 20140610
  Receipt Date: 20140610
  Transmission Date: 20141212
  Serious: Yes (Death)
  Sender: FDA-Public Use
  Company Number: US-EXELIXIS-CABO-13003622

PATIENT
  Age: 71 Year
  Sex: Male

DRUGS (2)
  1. COMETRIQ [Suspect]
     Indication: PROSTATE CANCER
     Dosage: 60 MG, QD
     Route: 048
     Dates: start: 20130927
  2. HYDROCODONE [Concomitant]

REACTIONS (15)
  - Death [Fatal]
  - Contusion [Recovering/Resolving]
  - Skin lesion [Not Recovered/Not Resolved]
  - Hiccups [Unknown]
  - Eye swelling [Unknown]
  - Lip swelling [Unknown]
  - Swelling face [Unknown]
  - Exophthalmos [Unknown]
  - Skin discolouration [Unknown]
  - Oedema peripheral [Recovering/Resolving]
  - Somnolence [Unknown]
  - Fatigue [Unknown]
  - Diarrhoea [Unknown]
  - Stomatitis [Unknown]
  - Off label use [Unknown]
